FAERS Safety Report 22009083 (Version 1)
Quarter: 2023Q1

REPORT INFORMATION
  Report Type: Report from Study
  Country: HU (occurrence: HU)
  Receive Date: 20230220
  Receipt Date: 20230220
  Transmission Date: 20230418
  Serious: Yes (Hospitalization)
  Sender: FDA-Public Use
  Company Number: HU-ABBVIE-4311810

PATIENT
  Sex: Female

DRUGS (5)
  1. CARBIDOPA\LEVODOPA [Suspect]
     Active Substance: CARBIDOPA\LEVODOPA
     Indication: Parkinson^s disease
     Dosage: MORNING DOSE: 4.0 ML; CONTINUOUS DOSE: 3.2 ML/HOUR; EXTRA DOSE: 2.2 ML
     Route: 050
     Dates: start: 20150127
  2. CARBIDOPA\LEVODOPA [Suspect]
     Active Substance: CARBIDOPA\LEVODOPA
  3. MIRVEDOL [Concomitant]
     Indication: Dementia
     Dosage: 20 MILLIGRAM, IN THE MORNING
     Route: 048
  4. XADAGO [Concomitant]
     Active Substance: SAFINAMIDE MESYLATE
     Indication: Parkinson^s disease
     Dosage: FORM STRENGTH 200 MILLIGRAM?2 TABLETS IN THE MORNING
     Route: 048
     Dates: start: 202209
  5. PALIXID [Concomitant]
     Indication: Memory impairment
     Dosage: FORM STRENGTH 5 MILLIGRAM?5 MG IN THE EVENING
     Route: 048
     Dates: start: 202105

REACTIONS (2)
  - Fall [Unknown]
  - Femoral neck fracture [Recovering/Resolving]

NARRATIVE: CASE EVENT DATE: 20230207
